FAERS Safety Report 18031208 (Version 8)
Quarter: 2024Q3

REPORT INFORMATION
  Report Type: Report from Study
  Country: BR (occurrence: BR)
  Receive Date: 20200716
  Receipt Date: 20240911
  Transmission Date: 20241017
  Serious: Yes (Hospitalization, Other)
  Sender: NOVARTIS
  Company Number: None

PATIENT
  Age: 18 Year
  Sex: Male
  Weight: 40 kg

DRUGS (7)
  1. TRILEPTAL [Suspect]
     Active Substance: OXCARBAZEPINE
     Indication: Seizure
     Dosage: 12 ML, BID (STARTED 2 YEARS AGO)
     Route: 048
  2. TRILEPTAL [Suspect]
     Active Substance: OXCARBAZEPINE
     Dosage: UNK, BID (THROUGH THE MOUTH)
     Route: 048
  3. CLOBAZAM [Concomitant]
     Active Substance: CLOBAZAM
     Indication: Seizure
     Dosage: 1 DF, QHS (AT NIGHT)
     Route: 048
  4. CLOBAZAM [Concomitant]
     Active Substance: CLOBAZAM
     Dosage: 10 MG (HALF TABLET AT NIGHT)
     Route: 048
  5. DOMPERIDONE [Concomitant]
     Active Substance: DOMPERIDONE
     Indication: Abdominal discomfort
     Dosage: 5 ML  BEFORE LUNCH AND 5 ML BEFORE OF DINNER (30 MINUTES BEFORE)
     Route: 048
  6. MYLANTA PLUS [Concomitant]
     Active Substance: ALUMINUM HYDROXIDE\DIMETHICONE\MAGNESIUM HYDROXIDE
     Indication: Dyspepsia
     Dosage: 30 MINUTES BEFORE OF TRILEPTAL, 5 ML
     Route: 048
  7. MAGNESIUM HYDROXIDE [Concomitant]
     Active Substance: MAGNESIUM HYDROXIDE
     Indication: Constipation
     Dosage: SOMETIMES WHEN HE HAS CONSTIPATION-20 ML
     Route: 048

REACTIONS (5)
  - Vomiting [Recovered/Resolved]
  - Drug dependence [Unknown]
  - Seizure [Unknown]
  - Drug ineffective [Recovered/Resolved]
  - Product container issue [Unknown]

NARRATIVE: CASE EVENT DATE: 20200301
